FAERS Safety Report 8488513-7 (Version None)
Quarter: 2012Q3

REPORT INFORMATION
  Report Type: 
  Country: None (occurrence: None)
  Receive Date: 20120705
  Receipt Date: 20120628
  Transmission Date: 20120928
  Serious: Yes (Hospitalization)
  Sender: FDA-Public Use
  Company Number: US-SANOFI-AVENTIS-2012SA046794

PATIENT
  Age: 82 Year
  Sex: Male

DRUGS (6)
  1. CARAFATE [Concomitant]
  2. CHOLESTEROL- AND TRIGLYCERIDE REDUCERS [Concomitant]
  3. ANTIHYPERTENSIVES [Concomitant]
  4. COENZYME Q10 [Concomitant]
  5. MULTAQ [Suspect]
     Indication: ATRIAL FIBRILLATION
     Route: 048
     Dates: start: 20110501
  6. AMIODARONE HCL [Concomitant]

REACTIONS (2)
  - ABDOMINAL PAIN UPPER [None]
  - ATRIAL FIBRILLATION [None]
